FAERS Safety Report 20023139 (Version 9)
Quarter: 2023Q1

REPORT INFORMATION
  Report Type: Report from Study
  Country: US (occurrence: US)
  Receive Date: 20211102
  Receipt Date: 20230312
  Transmission Date: 20230418
  Serious: Yes (Hospitalization, Other)
  Sender: FDA-Public Use
  Company Number: NVSC2021US250633

PATIENT
  Age: 57 Year
  Sex: Female

DRUGS (4)
  1. KESIMPTA [Suspect]
     Active Substance: OFATUMUMAB
     Indication: Multiple sclerosis
     Dosage: 20 MG, QMO
     Route: 058
     Dates: start: 20211022
  2. KESIMPTA [Suspect]
     Active Substance: OFATUMUMAB
     Dosage: 20 MG, QMO
     Route: 058
  3. KESIMPTA [Suspect]
     Active Substance: OFATUMUMAB
     Dosage: 20 MG, QMO
     Route: 058
     Dates: start: 202205
  4. KESIMPTA [Suspect]
     Active Substance: OFATUMUMAB
     Dosage: 20 MG, QMO
     Route: 058
     Dates: start: 20220920

REACTIONS (21)
  - Vomiting [Not Recovered/Not Resolved]
  - Haematemesis [Not Recovered/Not Resolved]
  - Blood magnesium decreased [Not Recovered/Not Resolved]
  - Blood potassium decreased [Not Recovered/Not Resolved]
  - Renal neoplasm [Recovering/Resolving]
  - COVID-19 [Recovered/Resolved]
  - Pyrexia [Not Recovered/Not Resolved]
  - Cough [Not Recovered/Not Resolved]
  - Nasal congestion [Recovering/Resolving]
  - Hallucination [Unknown]
  - Somnolence [Recovered/Resolved]
  - Urinary tract infection bacterial [Not Recovered/Not Resolved]
  - Fatigue [Recovered/Resolved]
  - Contusion [Unknown]
  - Fall [Unknown]
  - Headache [Unknown]
  - Decreased appetite [Recovering/Resolving]
  - Skin burning sensation [Unknown]
  - Dermatitis contact [Recovered/Resolved]
  - Product storage error [Unknown]
  - Inappropriate schedule of product administration [Not Recovered/Not Resolved]

NARRATIVE: CASE EVENT DATE: 20211023
